FAERS Safety Report 5758750-0 (Version None)
Quarter: 2008Q2

REPORT INFORMATION
  Report Type: 
  Country: None (occurrence: None)
  Receive Date: 20080602
  Receipt Date: 20080516
  Transmission Date: 20081010
  Serious: Yes (Other)
  Sender: FDA-Public Use
  Company Number: CHNY2008JP01926

PATIENT
  Age: 27 Year
  Sex: Female

DRUGS (1)
  1. NICOTINE [Suspect]
     Indication: SMOKING CESSATION THERAPY
     Dosage: 21 MG, QD, TRANSDERMAL
     Route: 062
     Dates: start: 20080408, end: 20080426

REACTIONS (6)
  - APPLICATION SITE RASH [None]
  - CHAPPED LIPS [None]
  - LIP DISCOLOURATION [None]
  - NO THERAPEUTIC RESPONSE [None]
  - ORAL MUCOSA EROSION [None]
  - TREATMENT NONCOMPLIANCE [None]
